FAERS Safety Report 8059582-3 (Version None)
Quarter: 2012Q1

REPORT INFORMATION
  Report Type: 
  Country: None (occurrence: None)
  Receive Date: 20120113
  Receipt Date: 20120102
  Transmission Date: 20120608
  Serious: Yes (Hospitalization)
  Sender: FDA-Public Use
  Company Number: 1000026955

PATIENT
  Age: 65 Year
  Sex: Male

DRUGS (13)
  1. LANSOPRAZOLE [Suspect]
     Dosage: ORAL
     Route: 048
  2. TANAKAN (GINKGO BILOBA EXTRACT) [Concomitant]
  3. BIPERIDYS (DOMPERIDONE) [Concomitant]
  4. METHOTREXATE [Concomitant]
  5. SPECIAFOLDINE (FOLIC ACID) [Concomitant]
  6. LAMALINE (PARACETAMOL, CAFEINE, OPIUM) [Suspect]
     Dosage: ORAL
     Route: 048
     Dates: start: 20110201
  7. LEGALON (SILYBUM MARIANUM) [Concomitant]
  8. ALPRAZOLAM [Concomitant]
  9. ESCITALOPRAM OXALATE [Suspect]
     Dosage: ORAL
     Route: 048
     Dates: start: 20110201, end: 20110601
  10. EZETIMIBE [Suspect]
  11. ETIOVEN (NAFTAZONE) [Concomitant]
  12. ORENCIA [Suspect]
     Dosage: INTRAVENOUS (NOT OTHERWISE SPECIFIED)
     Route: 042
     Dates: start: 20080101, end: 20111017
  13. ATENOLOL [Suspect]
     Dosage: ORAL
     Route: 048

REACTIONS (6)
  - RENAL CYST [None]
  - TUBULOINTERSTITIAL NEPHRITIS [None]
  - OEDEMA PERIPHERAL [None]
  - ARTHRALGIA [None]
  - HYPOALBUMINAEMIA [None]
  - GLOMERULONEPHRITIS MEMBRANOUS [None]
